FAERS Safety Report 24981530 (Version 1)
Quarter: 2025Q1

REPORT INFORMATION
  Report Type: Spontaneous
  Country: RU (occurrence: RU)
  Receive Date: 20250218
  Receipt Date: 20250218
  Transmission Date: 20250409
  Serious: Yes (Other)
  Sender: CHEPLAPHARM
  Company Number: RU-ROCHE-10000198272

PATIENT
  Age: 47 Year
  Sex: Female

DRUGS (9)
  1. CAPECITABINE [Suspect]
     Active Substance: CAPECITABINE
     Indication: Breast cancer stage IV
     Dates: start: 202308, end: 20240903
  2. TRASTUZUMAB [Suspect]
     Active Substance: TRASTUZUMAB
     Indication: Breast cancer stage IV
     Dates: start: 20210105, end: 20240903
  3. TRASTUZUMAB [Suspect]
     Active Substance: TRASTUZUMAB
     Indication: Breast cancer stage IV
     Dates: start: 20240919
  4. ADO-TRASTUZUMAB EMTANSINE [Suspect]
     Active Substance: ADO-TRASTUZUMAB EMTANSINE
     Indication: Breast cancer stage IV
     Dates: start: 20210709, end: 20211112
  5. ADO-TRASTUZUMAB EMTANSINE [Suspect]
     Active Substance: ADO-TRASTUZUMAB EMTANSINE
     Indication: Breast cancer stage IV
     Route: 042
     Dates: start: 20220111
  6. DOCETAXEL [Suspect]
     Active Substance: DOCETAXEL
     Indication: Breast cancer stage IV
     Dates: start: 20210105
  7. LAPATINIB [Suspect]
     Active Substance: LAPATINIB
     Indication: Breast cancer stage IV
     Dosage: 1250 MG DAILY; 18 CYCLES?DAILY DOSE: 1250 MILLIGRAM
     Route: 048
     Dates: start: 202308, end: 20240903
  8. ERIBULIN [Suspect]
     Active Substance: ERIBULIN
     Indication: Breast cancer stage IV
     Dates: start: 20240919
  9. ZOLEDRONIC ACID [Concomitant]
     Active Substance: ZOLEDRONIC ACID
     Dates: start: 20201207

REACTIONS (7)
  - Metastases to bone [Unknown]
  - Metastases to breast [Unknown]
  - Metastases to central nervous system [Unknown]
  - Metastases to lymph nodes [Unknown]
  - Tumour invasion [Unknown]
  - Lymphadenopathy [Unknown]
  - Thoracic vertebral fracture [Unknown]
